FAERS Safety Report 12072990 (Version 3)
Quarter: 2016Q2

REPORT INFORMATION
  Report Type: Spontaneous
  Country: US (occurrence: US)
  Receive Date: 20160212
  Receipt Date: 20160427
  Transmission Date: 20160815
  Serious: Yes (Hospitalization, Other)
  Sender: FDA-Public Use
  Company Number: US-GLAXOSMITHKLINE-US2016GSK019728

PATIENT
  Sex: Female
  Weight: 101.13 kg

DRUGS (1)
  1. BENLYSTA [Suspect]
     Active Substance: BELIMUMAB
     Indication: SYSTEMIC LUPUS ERYTHEMATOSUS
     Dosage: 1520 MG, Z
     Route: 042
     Dates: start: 2011, end: 2015

REACTIONS (7)
  - Non-Hodgkin^s lymphoma stage IV [Unknown]
  - Blindness [Unknown]
  - Life support [Unknown]
  - Ill-defined disorder [Unknown]
  - Hospitalisation [Unknown]
  - Apparent death [Unknown]
  - Abasia [Unknown]
